FAERS Safety Report 8309737-5 (Version None)
Quarter: 2012Q2

REPORT INFORMATION
  Report Type: 
  Country: None (occurrence: None)
  Receive Date: 20120425
  Receipt Date: 20120413
  Transmission Date: 20120825
  Serious: Yes (Hospitalization, Disabling)
  Sender: FDA-Public Use
  Company Number: PHFR2012GB002124

PATIENT
  Sex: Female

DRUGS (6)
  1. EXELON [Suspect]
     Indication: DEMENTIA
     Dosage: 4.6 MG, DAILY
     Route: 062
     Dates: start: 20090123, end: 20090210
  2. EYE DROPS [Concomitant]
     Indication: DRY EYE
     Dosage: UNK UKN, UNK
  3. EXELON [Suspect]
     Dosage: 9.5 MG, DAILY
     Route: 062
     Dates: start: 20090210, end: 20090303
  4. MOVIPREP [Concomitant]
     Indication: CONSTIPATION
     Dosage: UNK UKN, UNK
     Route: 048
  5. AMLODIPINE [Concomitant]
     Indication: HYPERTENSION
     Dosage: UNK UKN, UNK
     Route: 048
     Dates: start: 20091120
  6. PARACETAMOL [Concomitant]
     Indication: PAIN
     Dosage: 2 DF, DAILY
     Route: 048
     Dates: start: 20090108

REACTIONS (7)
  - SCREAMING [None]
  - AGGRESSION [None]
  - INSOMNIA [None]
  - DEMENTIA [None]
  - AGITATION [None]
  - RESTLESSNESS [None]
  - ABNORMAL BEHAVIOUR [None]
